FAERS Safety Report 5919586-0 (Version None)
Quarter: 2008Q4

REPORT INFORMATION
  Report Type: 
  Country: None (occurrence: None)
  Receive Date: 20081015
  Receipt Date: 20080320
  Transmission Date: 20090506
  Serious: Yes (Hospitalization)
  Sender: FDA-Public Use
  Company Number: US-BRISTOL-MYERS SQUIBB COMPANY-14121883

PATIENT
  Age: 60 Year
  Sex: Female

DRUGS (2)
  1. KENALOG-40 [Suspect]
     Dosage: RECIEVED EITHER OF LOT#7L25347 AND LOT#7L30354
     Dates: start: 20080314
  2. MARCAINE [Suspect]
     Dates: start: 20080314

REACTIONS (2)
  - LOSS OF CONSCIOUSNESS [None]
  - SHOCK [None]
